FAERS Safety Report 6104764-0 (Version None)
Quarter: 2009Q1

REPORT INFORMATION
  Report Type: 
  Country: None (occurrence: None)
  Receive Date: 20090304
  Receipt Date: 20090304
  Transmission Date: 20090719
  Serious: Yes (Other)
  Sender: FDA-Public Use
  Company Number: None

PATIENT
  Age: 71 Year
  Sex: Male

DRUGS (3)
  1. LAMICTAL [Suspect]
     Indication: COMPLEX PARTIAL SEIZURES
     Dosage: 200 MG BID PO
     Route: 048
     Dates: start: 20030101
  2. CARBAMAZEPINE [Concomitant]
  3. KEPPRA [Concomitant]

REACTIONS (1)
  - CONVULSION [None]
